FAERS Safety Report 10501396 (Version 8)
Quarter: 2015Q3

REPORT INFORMATION
  Report Type: Report from Study
  Country: CA (occurrence: CA)
  Receive Date: 20141007
  Receipt Date: 20150708
  Transmission Date: 20151125
  Serious: Yes (Death, Hospitalization, Other)
  Sender: FDA-Public Use
  Company Number: CA-ROCHE-1107883

PATIENT
  Age: 52 Year
  Sex: Female
  Weight: 90 kg

DRUGS (16)
  1. PANTOPRAZOLE [Concomitant]
     Active Substance: PANTOPRAZOLE SODIUM
  2. METHOTREXATE [Concomitant]
     Active Substance: METHOTREXATE
  3. RITUXAN [Suspect]
     Active Substance: RITUXIMAB
     Indication: PRODUCT USED FOR UNKNOWN INDICATION
     Dosage: DAY 1+15
     Route: 042
     Dates: start: 20141010
  4. ZOPICLONE [Concomitant]
     Active Substance: ZOPICLONE
  5. ACTEMRA [Suspect]
     Active Substance: TOCILIZUMAB
     Indication: RHEUMATOID ARTHRITIS
     Route: 042
     Dates: start: 20120329, end: 20130425
  6. PREGABALIN. [Concomitant]
     Active Substance: PREGABALIN
  7. FOLIC ACID. [Concomitant]
     Active Substance: FOLIC ACID
  8. RISEDRONATE [Concomitant]
     Active Substance: RISEDRONATE SODIUM
  9. DICLOFENAC [Concomitant]
     Active Substance: DICLOFENAC
     Dosage: COMPANY: SANDOZ
     Route: 065
  10. BENADRYL [Concomitant]
     Active Substance: DIPHENHYDRAMINE HYDROCHLORIDE
     Indication: PREMEDICATION
     Route: 048
     Dates: start: 20141010
  11. CYCLOPHOSPHAMIDE. [Concomitant]
     Active Substance: CYCLOPHOSPHAMIDE
  12. OXYCODONE HYDROCHLORIDE AND ACETAMINOPHEN [Concomitant]
     Active Substance: ACETAMINOPHEN\OXYCODONE HYDROCHLORIDE
  13. SOLU-MEDROL [Concomitant]
     Active Substance: METHYLPREDNISOLONE SODIUM SUCCINATE
     Indication: PREMEDICATION
     Route: 042
     Dates: start: 20141010
  14. VITAMIN D3 [Concomitant]
     Active Substance: CHOLECALCIFEROL
  15. DAPSONE. [Concomitant]
     Active Substance: DAPSONE
     Route: 065
  16. AMITRIPTYLINE [Concomitant]
     Active Substance: AMITRIPTYLINE

REACTIONS (13)
  - Rheumatoid arthritis [Unknown]
  - Malaise [Unknown]
  - Infusion related reaction [Unknown]
  - Pneumonia [Unknown]
  - Musculoskeletal stiffness [Recovered/Resolved]
  - Weight increased [Not Recovered/Not Resolved]
  - Oxygen saturation decreased [Unknown]
  - Blood pressure diastolic increased [Not Recovered/Not Resolved]
  - Interstitial lung disease [Unknown]
  - Interstitial lung disease [Not Recovered/Not Resolved]
  - Ischaemia [Unknown]
  - Cardiac arrest [Fatal]
  - Nasopharyngitis [Recovered/Resolved]

NARRATIVE: CASE EVENT DATE: 20120524
